FAERS Safety Report 8596474-5 (Version None)
Quarter: 2012Q3

REPORT INFORMATION
  Report Type: 
  Country: None (occurrence: None)
  Receive Date: 20120815
  Receipt Date: 20120807
  Transmission Date: 20120928
  Serious: Yes (Hospitalization, Other)
  Sender: FDA-Public Use
  Company Number: US-ACTELION-A-US2011-48069

PATIENT
  Age: 37 Year
  Sex: Female

DRUGS (6)
  1. TRACLEER [Suspect]
     Indication: PULMONARY ARTERIAL HYPERTENSION
     Dosage: UNK
     Route: 048
     Dates: start: 20090424
  2. TRACLEER [Suspect]
     Route: 048
  3. REVATIO [Concomitant]
  4. COUMADIN [Concomitant]
  5. TYVASO [Concomitant]
  6. DIURETICS [Concomitant]

REACTIONS (6)
  - BLOOD CREATININE ABNORMAL [None]
  - CHEST DISCOMFORT [None]
  - DYSPNOEA [None]
  - PULMONARY ARTERIAL HYPERTENSION [None]
  - OEDEMA [None]
  - FLUID OVERLOAD [None]
